FAERS Safety Report 5718221-4 (Version None)
Quarter: 2008Q2

REPORT INFORMATION
  Report Type: 
  Country: None (occurrence: None)
  Receive Date: 20080425
  Receipt Date: 20080417
  Transmission Date: 20081010
  Serious: Yes (Other)
  Sender: FDA-Public Use
  Company Number: US-ASTRAZENECA-2008UW07974

PATIENT
  Sex: Female

DRUGS (5)
  1. ARIMIDEX [Suspect]
     Route: 048
     Dates: start: 20050801
  2. ALPHAGAN [Concomitant]
  3. TRUSOPT [Concomitant]
  4. XALATAN [Concomitant]
  5. FLOVENT [Concomitant]

REACTIONS (4)
  - ACTIVITIES OF DAILY LIVING IMPAIRED [None]
  - HOT FLUSH [None]
  - IRRITABILITY [None]
  - MOOD ALTERED [None]
